FAERS Safety Report 23582848 (Version 1)
Quarter: 2024Q1

REPORT INFORMATION
  Report Type: Other
  Country: US (occurrence: None)
  Receive Date: 20240301
  Receipt Date: 20240301
  Transmission Date: 20240410
  Serious: No
  Sender: FDA-Public Use
  Company Number: US-ROCHE-3517745

PATIENT
  Age: 47 Year
  Sex: Female

DRUGS (1)
  1. OCREVUS [Suspect]
     Active Substance: OCRELIZUMAB
     Indication: Relapsing multiple sclerosis
     Dosage: 2 VIALS OF 300MG, MOST RECENT INFUSION : 07/FEB/2023, 20/FEB/2024, 15/AUG/2023
     Route: 065

REACTIONS (3)
  - Palpitations [Unknown]
  - Chest discomfort [Unknown]
  - Influenza [Unknown]
